FAERS Safety Report 15145602 (Version 3)
Quarter: 2020Q3

REPORT INFORMATION
  Report Type: Spontaneous
  Country: US (occurrence: US)
  Receive Date: 20180713
  Receipt Date: 20200730
  Transmission Date: 20201102
  Serious: Yes (Other)
  Sender: FDA-Public Use
  Company Number: US-BIOMARINAP-US-2018-119050

PATIENT
  Age: 11 Year
  Sex: Male

DRUGS (1)
  1. ALDURAZYME [Suspect]
     Active Substance: LARONIDASE
     Indication: MUCOPOLYSACCHARIDOSIS I
     Dosage: 17.4 MILLIGRAM
     Route: 042
     Dates: start: 20100902

REACTIONS (9)
  - Ear tube insertion [Recovered/Resolved]
  - Oropharyngeal discomfort [Recovered/Resolved]
  - Pyrexia [Not Recovered/Not Resolved]
  - COVID-19 [Recovered/Resolved]
  - Central venous catheterisation [Recovered/Resolved]
  - Hip surgery [Recovered/Resolved]
  - SARS-CoV-2 test positive [Recovered/Resolved]
  - Limb operation [Recovered/Resolved]
  - Oropharyngeal pain [Unknown]

NARRATIVE: CASE EVENT DATE: 2011
